FAERS Safety Report 6892904-5 (Version None)
Quarter: 2010Q3

REPORT INFORMATION
  Report Type: 
  Country: None (occurrence: None)
  Receive Date: 20100731
  Receipt Date: 20081029
  Transmission Date: 20110219
  Serious: No
  Sender: FDA-Public Use
  Company Number: US-PFIZER INC-2008077677

PATIENT
  Sex: Male

DRUGS (1)
  1. NEURONTIN [Suspect]
     Dosage: 600MG ONE IN THE MORNING, TWO AT BEDTIME
     Route: 048
     Dates: start: 20070401

REACTIONS (1)
  - DRUG INEFFECTIVE [None]
